FAERS Safety Report 24003041 (Version 1)
Quarter: 2024Q2

REPORT INFORMATION
  Report Type: Spontaneous
  Country: RO (occurrence: RO)
  Receive Date: 20240624
  Receipt Date: 20240624
  Transmission Date: 20240715
  Serious: Yes (Life-Threatening, Disabling, Other)
  Sender: FDA-Public Use
  Company Number: RO-SLAVIA-KETOPROFEN_PARACETAMOL_2024_04

PATIENT
  Age: 11 Year
  Sex: Female

DRUGS (4)
  1. ACETAMINOPHEN [Suspect]
     Active Substance: ACETAMINOPHEN
     Indication: Asthma
  2. KETOPROFEN [Suspect]
     Active Substance: KETOPROFEN
     Indication: Back pain
  3. DUPILUMAB [Concomitant]
     Active Substance: DUPILUMAB
     Indication: Product used for unknown indication
  4. IBUPROFEN [Suspect]
     Active Substance: IBUPROFEN
     Indication: Product used for unknown indication

REACTIONS (4)
  - Respiratory distress [Recovering/Resolving]
  - Bronchospasm [Unknown]
  - Asthma [Recovered/Resolved]
  - NSAID exacerbated respiratory disease [Recovered/Resolved]
